FAERS Safety Report 15833565 (Version 1)
Quarter: 2018Q4

REPORT INFORMATION
  Report Type: Spontaneous
  Country: US (occurrence: US)
  Receive Date: 20181221
  Receipt Date: 20181221
  Transmission Date: 20190205
  Serious: No
  Sender: FDA-Public Use
  Company Number: None

PATIENT
  Age: 51 Year
  Sex: Female

DRUGS (1)
  1. SIMPONI [Suspect]
     Active Substance: GOLIMUMAB

REACTIONS (5)
  - Knee operation [None]
  - Nasopharyngitis [None]
  - Malaise [None]
  - Sinusitis [None]
  - Therapy cessation [None]

NARRATIVE: CASE EVENT DATE: 20181031
